FAERS Safety Report 13335374 (Version 1)
Quarter: 2017Q1

REPORT INFORMATION
  Report Type: Spontaneous
  Country: US (occurrence: US)
  Receive Date: 20170314
  Receipt Date: 20170314
  Transmission Date: 20170428
  Serious: No
  Sender: FDA-Public Use
  Company Number: US-GALDERMA-US16006142

PATIENT
  Age: 66 Year
  Sex: Female

DRUGS (11)
  1. DILANTIN (PHENYTOIN) [Concomitant]
     Indication: SEIZURE
     Route: 048
  2. CENTRUM SILVER MULTIVITAMIN [Concomitant]
     Route: 048
     Dates: start: 20160904
  3. DILANTIN (PHENYTOIN) [Concomitant]
     Route: 048
  4. TRI-LUMA [Suspect]
     Active Substance: FLUOCINOLONE ACETONIDE\HYDROQUINONE\TRETINOIN
     Indication: SKIN HYPERPIGMENTATION
     Route: 061
     Dates: start: 20160904, end: 20160909
  5. VANI CREAM SUNSCREEN [Concomitant]
  6. TYLENOL [Concomitant]
     Active Substance: ACETAMINOPHEN
     Indication: HEADACHE
     Route: 048
  7. BIOTIN [Concomitant]
     Active Substance: BIOTIN
     Route: 048
     Dates: start: 20160904
  8. UNSPECIFIED SLOW RELEASE IRON PILL [Concomitant]
     Route: 048
  9. BENEFIBER [Concomitant]
     Active Substance: STARCH, WHEAT
     Dosage: SLOW RELEASE
     Route: 048
  10. NEUTROGENA SOAP [Concomitant]
  11. VITAMIN D 5,000 [Concomitant]
     Dosage: 5,000 UNITS
     Route: 048
     Dates: start: 20160904

REACTIONS (8)
  - Rash papular [Recovered/Resolved]
  - Rash erythematous [Recovered/Resolved]
  - Incorrect product storage [Recovered/Resolved]
  - Skin burning sensation [Recovered/Resolved]
  - Skin discolouration [Unknown]
  - Dry skin [Recovered/Resolved]
  - Skin irritation [Recovered/Resolved]
  - Product use issue [Recovered/Resolved]

NARRATIVE: CASE EVENT DATE: 20160904
